FAERS Safety Report 5279688-1 (Version None)
Quarter: 2007Q1

REPORT INFORMATION
  Report Type: 
  Country: None (occurrence: None)
  Receive Date: 20070323
  Receipt Date: 20070320
  Transmission Date: 20070707
  Serious: Yes (Hospitalization)
  Sender: FDA-Public Use
  Company Number: SP01097

PATIENT
  Age: 66 Year
  Sex: Female

DRUGS (2)
  1. VISICOL [Suspect]
     Indication: COLONOSCOPY
     Dosage: ORAL
     Route: 048
     Dates: start: 20060321, end: 20060321
  2. LISINOPRIL [Concomitant]

REACTIONS (3)
  - ASTHENIA [None]
  - NEPHROCALCINOSIS [None]
  - RENAL FAILURE ACUTE [None]
